FAERS Safety Report 7859102 (Version 10)
Quarter: 2014Q3

REPORT INFORMATION
  Report Type: Report from Study
  Country: CA (occurrence: CA)
  Receive Date: 20110316
  Receipt Date: 20140721
  Transmission Date: 20150326
  Serious: Yes (Other)
  Sender: FDA-Public Use
  Company Number: PHHY2011CA17835

PATIENT
  Age: 60 Year
  Sex: Female

DRUGS (2)
  1. SANDOSTATIN LAR DEPOT [Suspect]
     Active Substance: OCTREOTIDE ACETATE
     Dosage: 30 MG, EVERY 2 WEEKS
     Route: 030
     Dates: start: 20120410
  2. SANDOSTATIN LAR DEPOT [Suspect]
     Active Substance: OCTREOTIDE ACETATE
     Indication: SMALL INTESTINE CARCINOMA
     Dosage: 30 MG, EVERY 4 WEEKS
     Route: 030
     Dates: start: 20080128

REACTIONS (6)
  - Upper limb fracture [Unknown]
  - Constipation [Not Recovered/Not Resolved]
  - Heart rate decreased [Unknown]
  - Blood pressure diastolic decreased [Unknown]
  - Sinusitis [Unknown]
  - Pain [Unknown]

NARRATIVE: CASE EVENT DATE: 20140114
